FAERS Safety Report 4656498-7 (Version None)
Quarter: 2005Q2

REPORT INFORMATION
  Report Type: 
  Country: None (occurrence: None)
  Receive Date: 20050504
  Receipt Date: 20050418
  Transmission Date: 20051028
  Serious: Yes (Hospitalization)
  Sender: FDA-Public Use
  Company Number: ENTC2005-0111

PATIENT
  Age: 79 Year
  Sex: Male

DRUGS (2)
  1. STALEVO 100 [Suspect]
     Indication: PARKINSON'S DISEASE
     Dosage: 150 MG/37.5 MG/200 MG TID, ORAL
     Route: 048
     Dates: start: 20041001, end: 20050128
  2. GRAPEFRUIT JUICE [Concomitant]

REACTIONS (5)
  - ABASIA [None]
  - FALL [None]
  - HEPATIC ENZYME INCREASED [None]
  - LABELLED DRUG-FOOD INTERACTION MEDICATION ERROR [None]
  - SCIATICA [None]
